FAERS Safety Report 11564914 (Version 2)
Quarter: 2017Q1

REPORT INFORMATION
  Report Type: Spontaneous
  Country: US (occurrence: US)
  Receive Date: 20150928
  Receipt Date: 20170201
  Transmission Date: 20170428
  Serious: No
  Sender: FDA-Public Use
  Company Number: US-EXELIXIS-CABO-13002755

PATIENT
  Sex: Male
  Weight: 68.27 kg

DRUGS (15)
  1. COMETRIQ [Suspect]
     Active Substance: CABOZANTINIB S-MALATE
     Dosage: 100 MG, 3X/WK ON MWF
     Route: 048
     Dates: start: 20150708, end: 2015
  2. SYNTHROID [Concomitant]
     Active Substance: LEVOTHYROXINE SODIUM
  3. VITAMIN D [Concomitant]
     Active Substance: CHOLECALCIFEROL
  4. FLOMAX [Concomitant]
     Active Substance: TAMSULOSIN HYDROCHLORIDE
  5. COMETRIQ [Suspect]
     Active Substance: CABOZANTINIB S-MALATE
     Dosage: 140 MG, QD
     Route: 048
     Dates: start: 20150528, end: 2015
  6. COMETRIQ [Suspect]
     Active Substance: CABOZANTINIB S-MALATE
     Dosage: 100 MG DAILY ON M-W-F
     Route: 048
     Dates: start: 201601
  7. LISINOPRIL. [Concomitant]
     Active Substance: LISINOPRIL
  8. ONDANSETRON [Concomitant]
     Active Substance: ONDANSETRON
  9. COMETRIQ [Suspect]
     Active Substance: CABOZANTINIB S-MALATE
     Indication: THYROID CANCER
     Dosage: 140 MG, QD
     Route: 048
     Dates: start: 20130228, end: 20130318
  10. COMETRIQ [Suspect]
     Active Substance: CABOZANTINIB S-MALATE
     Dosage: 100 MG, QD
     Route: 048
     Dates: start: 2015, end: 20150707
  11. COMETRIQ [Suspect]
     Active Substance: CABOZANTINIB S-MALATE
     Dosage: 100 MG, QD
     Route: 048
     Dates: start: 20150826, end: 2015
  12. TAMSULOSIN [Concomitant]
     Active Substance: TAMSULOSIN
  13. COLESTIPOL [Concomitant]
     Active Substance: COLESTIPOL
  14. COMETRIQ [Suspect]
     Active Substance: CABOZANTINIB S-MALATE
     Dosage: 80 MG, QD
     Route: 048
     Dates: start: 2013, end: 20130624
  15. CENTRUM SILVER [Concomitant]
     Active Substance: MINERALS\VITAMINS

REACTIONS (21)
  - Dysphonia [Unknown]
  - Oral discomfort [Unknown]
  - Pain of skin [Unknown]
  - Decreased appetite [Unknown]
  - Nausea [Unknown]
  - Weight decreased [Not Recovered/Not Resolved]
  - Lip pain [Unknown]
  - Peripheral swelling [Unknown]
  - Glossodynia [Unknown]
  - Blister [Unknown]
  - Stomatitis [Unknown]
  - Diarrhoea [Unknown]
  - Skin exfoliation [Unknown]
  - Dysgeusia [Unknown]
  - Tongue exfoliation [Unknown]
  - Dysphagia [Unknown]
  - Dizziness [Unknown]
  - Paraesthesia [Unknown]
  - Neuralgia [Unknown]
  - Balance disorder [Unknown]
  - Cheilitis [Unknown]

NARRATIVE: CASE EVENT DATE: 2013
